FAERS Safety Report 20891016 (Version 1)
Quarter: 2022Q2

REPORT INFORMATION
  Report Type: Spontaneous
  Country: GR (occurrence: GR)
  Receive Date: 20220530
  Receipt Date: 20220530
  Transmission Date: 20220721
  Serious: Yes (Other)
  Sender: FDA-Public Use
  Company Number: GR-ROCHE-3098362

PATIENT
  Age: 69 Year
  Sex: Male

DRUGS (8)
  1. BEVACIZUMAB [Suspect]
     Active Substance: BEVACIZUMAB
     Indication: Hepatocellular carcinoma
     Dosage: 15 MILLIGRAM/KILOGRAM, Q3WK
     Route: 042
     Dates: start: 202012
  2. ATEZOLIZUMAB [Suspect]
     Active Substance: ATEZOLIZUMAB
     Indication: Hepatocellular carcinoma
     Dosage: 1200 MILLIGRAM, Q3WK
     Route: 065
     Dates: start: 202012
  3. COVID-19 vaccine [Concomitant]
     Dosage: UNK
     Dates: start: 202103
  4. AMLODIPINE [Concomitant]
     Active Substance: AMLODIPINE BESYLATE
  5. ROSUVASTATIN [Concomitant]
     Active Substance: ROSUVASTATIN
  6. ASPIRIN [Concomitant]
     Active Substance: ASPIRIN
  7. METFORMIN [Concomitant]
     Active Substance: METFORMIN HYDROCHLORIDE
  8. CARVEDILOL [Concomitant]
     Active Substance: CARVEDILOL

REACTIONS (3)
  - Tooth extraction [Unknown]
  - Hypertension [Unknown]
  - Proteinuria [Unknown]

NARRATIVE: CASE EVENT DATE: 20201201
